FAERS Safety Report 11260459 (Version 1)
Quarter: 2015Q3

REPORT INFORMATION
  Report Type: Spontaneous
  Country: AU (occurrence: AU)
  Receive Date: 20150710
  Receipt Date: 20150710
  Transmission Date: 20151125
  Serious: Yes (Other)
  Sender: FDA-Public Use
  Company Number: AU-GUERBET LLC-1040457

PATIENT
  Sex: Female

DRUGS (1)
  1. HEXABRIX [Suspect]
     Active Substance: IOXAGLATE MEGLUMINE\IOXAGLATE SODIUM

REACTIONS (3)
  - Agitation [Unknown]
  - Circulatory collapse [Unknown]
  - Headache [Unknown]
